FAERS Safety Report 18669027 (Version 2)
Quarter: 2021Q2

REPORT INFORMATION
  Report Type: Spontaneous
  Country: US (occurrence: US)
  Receive Date: 20201228
  Receipt Date: 20210413
  Transmission Date: 20210717
  Serious: Yes (Life-Threatening, Hospitalization, Other)
  Sender: FDA-Public Use
  Company Number: US-ACCORD-211956

PATIENT
  Age: 47 Year
  Sex: Male

DRUGS (2)
  1. LORAZEPAM. [Suspect]
     Active Substance: LORAZEPAM
     Indication: SEIZURE
     Dosage: ALSO RECEIVED AT THE DOSE OF 1 MG
  2. CLOBAZAM. [Suspect]
     Active Substance: CLOBAZAM
     Indication: SEIZURE
     Dosage: ONCE A DAY

REACTIONS (4)
  - Somnolence [Unknown]
  - Sepsis [Unknown]
  - Salivary hypersecretion [Unknown]
  - Pneumonia aspiration [Recovered/Resolved]
